FAERS Safety Report 10075845 (Version 1)
Quarter: 2014Q2

REPORT INFORMATION
  Report Type: Spontaneous
  Country: US (occurrence: None)
  Receive Date: 20140411
  Receipt Date: 20140411
  Transmission Date: 20141212
  Serious: Yes (Life-Threatening, Hospitalization)
  Sender: FDA-Public Use
  Company Number: None

PATIENT
  Age: 78 Year
  Sex: Male
  Weight: 113.5 kg

DRUGS (1)
  1. LISINOPRIL [Suspect]
     Route: 048
     Dates: start: 20131026, end: 20140402

REACTIONS (5)
  - Hyperkalaemia [None]
  - Dyspnoea [None]
  - Renal failure acute [None]
  - Bradycardia [None]
  - Sepsis [None]
